FAERS Safety Report 5164815-7 (Version None)
Quarter: 2006Q4

REPORT INFORMATION
  Report Type: 
  Country: None (occurrence: None)
  Receive Date: 20061124
  Receipt Date: 20061113
  Transmission Date: 20070319
  Serious: Yes (Death, Hospitalization)
  Sender: FDA-Public Use
  Company Number: 232531

PATIENT
  Age: 45 Year
  Sex: Male
  Weight: 79.5 kg

DRUGS (12)
  1. AVASTIN [Suspect]
     Indication: NON-SMALL CELL LUNG CANCER
     Dosage: 15 MG/KG
     Dates: start: 20060808
  2. DOCETAXEL [Suspect]
     Indication: NON-SMALL CELL LUNG CANCER
     Dosage: 70 MG/M2
     Dates: start: 20060908
  3. OXALIPLATIN [Suspect]
     Dosage: 100 MG/M2
     Dates: start: 20060908
  4. ERLOTINIB [Concomitant]
  5. STOOL SOFTNER [Concomitant]
  6. ALBUTEROL [Concomitant]
  7. PAXIL [Concomitant]
  8. SENNA [Concomitant]
  9. OXYCODONE HCL [Concomitant]
  10. NEURONTIN [Concomitant]
  11. ATIVAN [Concomitant]
  12. MIRALAX [Concomitant]

REACTIONS (5)
  - GENERAL PHYSICAL HEALTH DETERIORATION [None]
  - PNEUMONIA [None]
  - PULMONARY CONGESTION [None]
  - RESPIRATORY DISTRESS [None]
  - RESTLESSNESS [None]
